FAERS Safety Report 7373302-7 (Version None)
Quarter: 2011Q1

REPORT INFORMATION
  Report Type: 
  Country: None (occurrence: None)
  Receive Date: 20110324
  Receipt Date: 20110314
  Transmission Date: 20110831
  Serious: Yes (Hospitalization)
  Sender: FDA-Public Use
  Company Number: DE-CELGENEUS-062-C5013-08042051

PATIENT
  Sex: Male
  Weight: 64.8 kg

DRUGS (5)
  1. LENALIDOMIDE [Suspect]
     Dosage: DOSE REDUCED
     Route: 048
     Dates: start: 20080523
  2. MELPHALAN [Suspect]
     Indication: MULTIPLE MYELOMA
     Route: 065
     Dates: start: 20080314, end: 20080414
  3. LENALIDOMIDE [Suspect]
     Indication: MULTIPLE MYELOMA
     Route: 048
     Dates: start: 20080314, end: 20080425
  4. PREDNISONE [Suspect]
     Indication: MULTIPLE MYELOMA
     Route: 065
     Dates: start: 20080314, end: 20080414
  5. RED BLOOD CELLS [Concomitant]
     Dosage: 4 PACKS
     Route: 051
     Dates: start: 20080426, end: 20080502

REACTIONS (1)
  - ACUTE CORONARY SYNDROME [None]
